FAERS Safety Report 8844852 (Version 2)
Quarter: 2012Q4

REPORT INFORMATION
  Report Type: Report from Study
  Country: US (occurrence: US)
  Receive Date: 20121017
  Receipt Date: 20121115
  Transmission Date: 20130627
  Serious: Yes (Hospitalization, Disabling, Other)
  Sender: FDA-Public Use
  Company Number: US-PURDUE-USA-2012-0094294

PATIENT
  Age: 58 Year
  Sex: Male

DRUGS (1)
  1. OXYCONTIN (NDA 22-272) [Suspect]
     Indication: PRODUCT USED FOR UNKNOWN INDICATION
     Dosage: 160 mg, q8h
     Route: 048

REACTIONS (4)
  - Leg amputation [Recovered/Resolved]
  - Cardiac failure congestive [Unknown]
  - Pleural effusion [Not Recovered/Not Resolved]
  - Dyspnoea [Unknown]
